FAERS Safety Report 6336449-X (Version None)
Quarter: 2009Q3

REPORT INFORMATION
  Report Type: 
  Country: None (occurrence: None)
  Receive Date: 20090901
  Receipt Date: 20090827
  Transmission Date: 20100115
  Serious: Yes (Hospitalization)
  Sender: FDA-Public Use
  Company Number: DE-AVENTIS-200911821DE

PATIENT
  Age: 71 Year
  Sex: Female
  Weight: 71 kg

DRUGS (1)
  1. LANTUS [Suspect]
     Indication: INSULIN-REQUIRING TYPE 2 DIABETES MELLITUS
     Dosage: DOSE: NOT REPORTED
     Route: 058
     Dates: start: 20040101

REACTIONS (1)
  - BREAST CANCER [None]
